FAERS Safety Report 4279607-0 (Version None)
Quarter: 2004Q1

REPORT INFORMATION
  Report Type: 
  Country: None (occurrence: None)
  Receive Date: 20040123
  Receipt Date: 20040108
  Transmission Date: 20041129
  Serious: Yes (Hospitalization)
  Sender: FDA-Public Use
  Company Number: BLOC000750

PATIENT
  Age: 78 Year
  Sex: Male

DRUGS (2)
  1. MYOBLOC [Suspect]
     Indication: TORTICOLLIS
     Dosage: 12,500 U INTRAMUSCULAR
     Route: 030
     Dates: start: 20031219, end: 20031219
  2. MYOBLOC [Suspect]

REACTIONS (3)
  - AREFLEXIA [None]
  - DYSARTHRIA [None]
  - DYSPHAGIA [None]
